FAERS Safety Report 9556520 (Version 3)
Quarter: 2013Q4

REPORT INFORMATION
  Report Type: Spontaneous
  Country: US (occurrence: US)
  Receive Date: 20130926
  Receipt Date: 20131028
  Transmission Date: 20140711
  Serious: No
  Sender: FDA-Public Use
  Company Number: US-PFIZER INC-2013275834

PATIENT
  Age: 39 Year
  Sex: Male
  Weight: 109 kg

DRUGS (1)
  1. CHANTIX [Suspect]
     Indication: SMOKING CESSATION THERAPY
     Dosage: 0.5 MG, SINGLE
     Dates: start: 20130922, end: 20130922

REACTIONS (11)
  - Panic attack [Unknown]
  - Dry mouth [Unknown]
  - Depression [Recovered/Resolved]
  - Anxiety [Unknown]
  - Irritability [Unknown]
  - Hostility [Not Recovered/Not Resolved]
  - Insomnia [Unknown]
  - Anger [Unknown]
  - Migraine [Unknown]
  - Palpitations [Unknown]
  - Heart rate increased [Unknown]
